FAERS Safety Report 4678965-2 (Version None)
Quarter: 2005Q2

REPORT INFORMATION
  Report Type: 
  Country: None (occurrence: None)
  Receive Date: 20050531
  Receipt Date: 20050523
  Transmission Date: 20051028
  Serious: Yes (Death)
  Sender: FDA-Public Use
  Company Number: A0559763A

PATIENT
  Age: 49 Year
  Sex: Male

DRUGS (3)
  1. BUPROPION HYDROCHLORIDE [Suspect]
     Indication: ILL-DEFINED DISORDER
     Dosage: 75  MG/ SEE IMAGE/ORAL
     Route: 048
  2. WELLBUTRIN XL [Suspect]
     Dosage: SEE IMAGE/ORAL
     Route: 048
  3. OLANZAPINE [Suspect]

REACTIONS (1)
  - OVERDOSE [None]
